FAERS Safety Report 17339656 (Version 1)
Quarter: 2020Q1

REPORT INFORMATION
  Report Type: Spontaneous
  Country: AR (occurrence: AR)
  Receive Date: 20200129
  Receipt Date: 20200129
  Transmission Date: 20200409
  Serious: Yes (Death)
  Sender: FDA-Public Use
  Company Number: AR-EMD SERONO-9143538

PATIENT
  Age: 57 Year
  Sex: Male

DRUGS (1)
  1. BAVENCIO [Suspect]
     Active Substance: AVELUMAB
     Indication: PRODUCT USED FOR UNKNOWN INDICATION
     Dates: start: 20191106, end: 20191201

REACTIONS (1)
  - Death [Fatal]

NARRATIVE: CASE EVENT DATE: 20191209
